FAERS Safety Report 26186030 (Version 1)
Quarter: 2025Q4

REPORT INFORMATION
  Report Type: Spontaneous
  Country: US (occurrence: None)
  Receive Date: 20251220
  Receipt Date: 20251220
  Transmission Date: 20260118
  Serious: Yes (Hospitalization)
  Sender: FDA-CTU
  Company Number: None

PATIENT
  Age: 41 Year
  Sex: Female
  Weight: 103.5 kg

DRUGS (16)
  1. QULIPTA [Suspect]
     Active Substance: ATOGEPANT
     Indication: Migraine prophylaxis
     Dosage: OTHER QUANTITY : 1 TABLET(S);
     Route: 048
     Dates: start: 20251101, end: 20251213
  2. MULTI [Concomitant]
  3. DIETARY SUPPLEMENT [Concomitant]
     Active Substance: DIETARY SUPPLEMENT
  4. black seed oil [Concomitant]
  5. ALPHA LIPOIC ACID [Concomitant]
     Active Substance: .ALPHA.-LIPOIC ACID
  6. CURCUMIN [Concomitant]
     Active Substance: CURCUMIN
  7. GINGER [Concomitant]
     Active Substance: GINGER
  8. ultimae 16 probiotic [Concomitant]
  9. ACETYLCARNITINE [Concomitant]
     Active Substance: ACETYLCARNITINE
  10. SELENIUM [Concomitant]
     Active Substance: SELENIUM
  11. LODINE [Concomitant]
     Active Substance: ETODOLAC
  12. bacopae [Concomitant]
  13. dessicated beef liver [Concomitant]
  14. TYROSINE [Concomitant]
     Active Substance: TYROSINE
  15. collagen peptides [Concomitant]
  16. cratine [Concomitant]

REACTIONS (4)
  - Dry eye [None]
  - Photosensitivity reaction [None]
  - Eye pain [None]
  - Ocular hyperaemia [None]

NARRATIVE: CASE EVENT DATE: 20251202
